FAERS Safety Report 7375860-5 (Version None)
Quarter: 2011Q1

REPORT INFORMATION
  Report Type: 
  Country: None (occurrence: None)
  Receive Date: 20110325
  Receipt Date: 20110321
  Transmission Date: 20110831
  Serious: Yes (Other)
  Sender: FDA-Public Use
  Company Number: A0919222A

PATIENT
  Age: 50 Year
  Sex: Male

DRUGS (2)
  1. LOVAZA [Suspect]
     Indication: BLOOD TRIGLYCERIDES INCREASED
     Dosage: 2CAP TWICE PER DAY
     Route: 048
     Dates: start: 20100701
  2. ASPIRIN [Concomitant]

REACTIONS (4)
  - DYSPEPSIA [None]
  - PRODUCT QUALITY ISSUE [None]
  - MALAISE [None]
  - GASTRIC DISORDER [None]
